FAERS Safety Report 5501396-X (Version None)
Quarter: 2007Q4

REPORT INFORMATION
  Report Type: 
  Country: None (occurrence: None)
  Receive Date: 20071026
  Receipt Date: 20071018
  Transmission Date: 20080405
  Serious: Yes (Hospitalization)
  Sender: FDA-Public Use
  Company Number: 2007SP018750

PATIENT
  Age: 68 Year
  Sex: Female
  Weight: 68 kg

DRUGS (3)
  1. INTERFERON ALFA-2B RECOMBINANT (S-P) (INTERFERON ALFA-2B) [Suspect]
     Indication: METASTATIC MALIGNANT MELANOMA
     Dosage: IV
     Route: 042
     Dates: start: 20061106, end: 20061130
  2. INTERFERON ALFA-2B RECOMBINANT (S-P) (INTERFERON ALFA-2B) [Suspect]
     Indication: METASTATIC MALIGNANT MELANOMA
     Dosage: IV
     Route: 042
     Dates: start: 20070319, end: 20070413
  3. INTERFERON ALFA-2B RECOMBINANT (S-P) (INTERFERON ALFA-2B) [Suspect]
     Indication: METASTATIC MALIGNANT MELANOMA
     Dosage: IV
     Route: 042
     Dates: start: 20070910

REACTIONS (1)
  - ERYSIPELAS [None]
